FAERS Safety Report 9127057 (Version 1)
Quarter: 2013Q1

REPORT INFORMATION
  Report Type: Spontaneous
  Country: US (occurrence: US)
  Receive Date: 20130122
  Receipt Date: 20130122
  Transmission Date: 20140127
  Serious: Yes (Other)
  Sender: FDA-Public Use
  Company Number: PHEH2013US001783

PATIENT
  Sex: Female

DRUGS (1)
  1. AFINITOR [Suspect]
     Indication: BREAST NEOPLASM
     Dosage: 10 MG, QD
     Route: 048
     Dates: start: 201211, end: 20130110

REACTIONS (6)
  - Pericardial effusion [Unknown]
  - Gait disturbance [Unknown]
  - Dyspnoea [Unknown]
  - Rash [Unknown]
  - Eating disorder [Unknown]
  - Stomatitis [Unknown]
